FAERS Safety Report 20141183 (Version 1)
Quarter: 2021Q4

REPORT INFORMATION
  Report Type: Spontaneous
  Country: US (occurrence: None)
  Receive Date: 20211201
  Receipt Date: 20211201
  Transmission Date: 20220303
  Serious: No
  Sender: FDA-Public Use
  Company Number: None

PATIENT

DRUGS (3)
  1. OMEPRAZOLE [Suspect]
     Active Substance: OMEPRAZOLE
     Route: 048
  2. SODIUM BICARBONATE [Suspect]
     Active Substance: SODIUM BICARBONATE
     Route: 048
  3. SODIUM BENZOATE [Suspect]
     Active Substance: SODIUM BENZOATE
     Route: 048

REACTIONS (4)
  - Product colour issue [None]
  - Product preparation error [None]
  - Product selection error [None]
  - Intercepted product dispensing error [None]
